FAERS Safety Report 5092832-4 (Version None)
Quarter: 2006Q3

REPORT INFORMATION
  Report Type: 
  Country: None (occurrence: None)
  Receive Date: 20060824
  Receipt Date: 20060807
  Transmission Date: 20061208
  Serious: Yes (Hospitalization)
  Sender: FDA-Public Use
  Company Number: 2006BH012933

PATIENT
  Age: 66 Year
  Sex: Male
  Weight: 68.5 kg

DRUGS (1)
  1. PROTENATE (PLASMA PROTEIN FRACTION (HUMAN)) [Suspect]
     Indication: DRUG USE FOR UNKNOWN INDICATION
     Dosage: 250 ML;IV
     Route: 042
     Dates: start: 20060805

REACTIONS (3)
  - BLOOD PRESSURE DECREASED [None]
  - DRUG ERUPTION [None]
  - PAROSMIA [None]
